FAERS Safety Report 5599293-7 (Version None)
Quarter: 2008Q1

REPORT INFORMATION
  Report Type: 
  Country: None (occurrence: None)
  Receive Date: 20080117
  Receipt Date: 20080104
  Transmission Date: 20080703
  Serious: Yes (Other)
  Sender: FDA-Public Use
  Company Number: 2008000435

PATIENT
  Age: 26 Year
  Sex: Female

DRUGS (1)
  1. BENADRYL [Suspect]
     Dosage: 1 TEASPOONFUL ONCE, ORAL
     Route: 048

REACTIONS (1)
  - DRUG HYPERSENSITIVITY [None]
